FAERS Safety Report 24242370 (Version 1)
Quarter: 2024Q3

REPORT INFORMATION
  Report Type: Spontaneous
  Country: US (occurrence: None)
  Receive Date: 20240822
  Receipt Date: 20240822
  Transmission Date: 20241017
  Serious: No
  Sender: Public
  Company Number: None

PATIENT
  Age: 60 Year
  Sex: Female
  Weight: 53.1 kg

DRUGS (1)
  1. AMLODIPINE BESYLATE [Suspect]
     Active Substance: AMLODIPINE BESYLATE

REACTIONS (4)
  - Dizziness [None]
  - Asthenia [None]
  - Feeling abnormal [None]
  - Heart rate decreased [None]

NARRATIVE: CASE EVENT DATE: 20240822
